FAERS Safety Report 8041070-1 (Version None)
Quarter: 2012Q1

REPORT INFORMATION
  Report Type: 
  Country: None (occurrence: None)
  Receive Date: 20120109
  Receipt Date: 20111227
  Transmission Date: 20120608
  Serious: Yes (Other)
  Sender: FDA-Public Use
  Company Number: JP-2011-12947

PATIENT
  Age: 80 Year
  Sex: Male

DRUGS (1)
  1. PLETAL [Suspect]
     Dosage: ORAL
     Route: 048

REACTIONS (3)
  - BRAIN CONTUSION [None]
  - FALL [None]
  - HEAD INJURY [None]
